FAERS Safety Report 9197790 (Version 1)
Quarter: 2013Q1

REPORT INFORMATION
  Report Type: Spontaneous
  Country: IT (occurrence: IT)
  Receive Date: 20130328
  Receipt Date: 20130328
  Transmission Date: 20140127
  Serious: Yes (Other)
  Sender: FDA-Public Use
  Company Number: IT-ABBOTT-13P-083-1065080-00

PATIENT
  Age: 30 Year
  Sex: Male
  Weight: 81 kg

DRUGS (4)
  1. NORVIR [Suspect]
     Indication: HIV INFECTION
     Route: 048
     Dates: start: 20111003, end: 20130306
  2. REYATAZ [Suspect]
     Indication: HIV INFECTION
     Dosage: 300MG DAILY
     Route: 048
     Dates: start: 20111003, end: 20130120
  3. PREZISTA [Concomitant]
     Indication: PRODUCT USED FOR UNKNOWN INDICATION
  4. TRUVADA [Concomitant]
     Indication: HIV INFECTION
     Dosage: 200/245NG
     Route: 048
     Dates: start: 20110919, end: 20130306

REACTIONS (1)
  - Ocular icterus [Unknown]
